FAERS Safety Report 12529930 (Version 1)
Quarter: 2016Q3

REPORT INFORMATION
  Report Type: Spontaneous
  Country: FR (occurrence: FR)
  Receive Date: 20160706
  Receipt Date: 20160706
  Transmission Date: 20161109
  Serious: Yes (Other)
  Sender: FDA-Public Use
  Company Number: FR-PFIZER INC-2016292473

PATIENT
  Age: 76 Year
  Sex: Female

DRUGS (4)
  1. LYRICA [Suspect]
     Active Substance: PREGABALIN
     Indication: SCIATICA
     Dosage: 50 MG, SINGLE
     Dates: start: 20160518, end: 20160518
  2. PREGABALINE ARROW [Suspect]
     Active Substance: PREGABALIN
     Indication: INTERVERTEBRAL DISC PROTRUSION
     Dosage: 50 MG, SINGLE
     Dates: start: 20160518, end: 20160518
  3. LYRICA [Suspect]
     Active Substance: PREGABALIN
     Indication: INTERVERTEBRAL DISC PROTRUSION
     Dosage: 25 MG, DAILY
     Dates: start: 201604
  4. PREGABALINE ARROW [Suspect]
     Active Substance: PREGABALIN
     Indication: SCIATICA
     Dosage: 25 MG, DAILY
     Dates: start: 201604

REACTIONS (7)
  - Metamorphopsia [Not Recovered/Not Resolved]
  - Visual acuity reduced [Unknown]
  - Intentional product use issue [Unknown]
  - Visual impairment [Not Recovered/Not Resolved]
  - Fall [Unknown]
  - Dizziness [Unknown]
  - Limb discomfort [Unknown]

NARRATIVE: CASE EVENT DATE: 201605
